FAERS Safety Report 25439061 (Version 1)
Quarter: 2025Q2

REPORT INFORMATION
  Report Type: Spontaneous
  Country: US (occurrence: US)
  Receive Date: 20250616
  Receipt Date: 20250616
  Transmission Date: 20250717
  Serious: No
  Sender: ROCHE
  Company Number: US-ROCHE-10000305706

PATIENT
  Age: 46 Year
  Sex: Female
  Weight: 108.86 kg

DRUGS (1)
  1. XOLAIR [Suspect]
     Active Substance: OMALIZUMAB
     Indication: Product used for unknown indication
     Route: 058
     Dates: start: 20250304

REACTIONS (9)
  - Product dose omission issue [Unknown]
  - Product use issue [Unknown]
  - Product preparation error [Unknown]
  - Device malfunction [Unknown]
  - Wrong technique in product usage process [Unknown]
  - Weight increased [Unknown]
  - Mass [Unknown]
  - Urticaria [Unknown]
  - Device defective [Unknown]

NARRATIVE: CASE EVENT DATE: 20250603
